FAERS Safety Report 22619682 (Version 3)
Quarter: 2023Q2

REPORT INFORMATION
  Report Type: Spontaneous
  Country: CA (occurrence: CA)
  Receive Date: 20230620
  Receipt Date: 20230626
  Transmission Date: 20230721
  Serious: Yes (Other)
  Sender: FDA-Public Use
  Company Number: CA-CELLTRION INC.-2023CA012388

PATIENT

DRUGS (1)
  1. INFLECTRA [Suspect]
     Active Substance: INFLIXIMAB-DYYB
     Dosage: 800 MG, INDUCTION WEEKS 0, 2, 6 MAINTENANCE EVERY 8 WEEKS
     Route: 042
     Dates: start: 20230517

REACTIONS (4)
  - Gout [Recovered/Resolved]
  - Plantar fasciitis [Not Recovered/Not Resolved]
  - Palmar erythema [Unknown]
  - Herpes zoster [Not Recovered/Not Resolved]

NARRATIVE: CASE EVENT DATE: 20230601
